FAERS Safety Report 5279987-3 (Version None)
Quarter: 2007Q1

REPORT INFORMATION
  Report Type: 
  Country: None (occurrence: None)
  Receive Date: 20061215
  Receipt Date: 20060104
  Transmission Date: 20070707
  Serious: Yes (Hospitalization)
  Sender: FDA-Public Use
  Company Number: HQWYE193805JAN06

PATIENT
  Sex: Female

DRUGS (2)
  1. EFFEXOR XR [Suspect]
     Indication: MAJOR DEPRESSION
     Dosage: ^TRYING TO TAPER OFF^ ORAL
     Route: 048
  2. EFFEXOR XR [Suspect]
     Indication: SOCIAL PHOBIA
     Dosage: ^TRYING TO TAPER OFF^ ORAL
     Route: 048

REACTIONS (1)
  - DRUG WITHDRAWAL SYNDROME [None]
